FAERS Safety Report 5595159-7 (Version None)
Quarter: 2008Q1

REPORT INFORMATION
  Report Type: 
  Country: None (occurrence: None)
  Receive Date: 20080117
  Receipt Date: 20080107
  Transmission Date: 20080703
  Serious: Yes (Hospitalization, Other)
  Sender: FDA-Public Use
  Company Number: CA-ABBOTT-07P-028-0431300-00

PATIENT
  Sex: Male

DRUGS (2)
  1. KALETRA [Suspect]
     Indication: HIV INFECTION
     Route: 048
     Dates: start: 20061110
  2. KALETRA [Suspect]
     Dates: start: 20071214

REACTIONS (6)
  - ABSCESS [None]
  - BACTERIAL INFECTION [None]
  - CHEST INJURY [None]
  - LYMPHADENOPATHY [None]
  - SWELLING [None]
  - TENDERNESS [None]
